FAERS Safety Report 21904249 (Version 1)
Quarter: 2023Q1

REPORT INFORMATION
  Report Type: Spontaneous
  Country: US (occurrence: None)
  Receive Date: 20230123
  Receipt Date: 20230123
  Transmission Date: 20230417
  Serious: Yes (Hospitalization)
  Sender: FDA-Public Use
  Company Number: None

PATIENT
  Sex: Male

DRUGS (5)
  1. TOBRAMYCIN [Suspect]
     Active Substance: TOBRAMYCIN
     Indication: Cystic fibrosis
     Dosage: 300 MG/5ML INHALATION??INHALE 5 ML VIA NEBULIZER EVERY 12 HOURS FOR 28 DAYS ON THEN 28 DAYS OFF? ?
     Route: 055
     Dates: start: 20210702
  2. TOBRAMYCIN [Suspect]
     Active Substance: TOBRAMYCIN
     Dosage: FREQUENCY : AS DIRECTED;?OTHER ROUTE : NEBULIZER;?
     Route: 050
  3. MYCOPHENOLIC ACID [Concomitant]
     Active Substance: MYCOPHENOLIC ACID
  4. SIROLIMUS [Concomitant]
     Active Substance: SIROLIMUS
  5. SODIUM CHLOR NEB [Concomitant]

REACTIONS (1)
  - Lung transplant [None]
